FAERS Safety Report 17534430 (Version 1)
Quarter: 2020Q1

REPORT INFORMATION
  Report Type: Spontaneous
  Country: US (occurrence: US)
  Receive Date: 20200312
  Receipt Date: 20200312
  Transmission Date: 20200409
  Serious: No
  Sender: FDA-Public Use
  Company Number: US-009507513-2002USA009512

PATIENT
  Age: 22 Year
  Sex: Female
  Weight: 97.05 kg

DRUGS (3)
  1. NEXPLANON [Suspect]
     Active Substance: ETONOGESTREL
     Indication: POLYCYSTIC OVARIES
     Dosage: 1 DOSAGE FORM EVERY 3 YEAR
     Route: 059
  2. NEXPLANON [Suspect]
     Active Substance: ETONOGESTREL
     Dosage: 1 DOSAGE FORM EVERY 3 YEAR
     Route: 059
  3. NEXPLANON [Suspect]
     Active Substance: ETONOGESTREL
     Dosage: 68 MG/1 IMPLANT EVERY 3 YEARS
     Route: 059
     Dates: start: 20200218

REACTIONS (7)
  - Product use in unapproved indication [Unknown]
  - Presyncope [Recovering/Resolving]
  - Pallor [Recovering/Resolving]
  - Implant site pain [Recovering/Resolving]
  - Device deployment issue [Not Recovered/Not Resolved]
  - Limb discomfort [Recovering/Resolving]
  - Adverse event [Recovering/Resolving]

NARRATIVE: CASE EVENT DATE: 202002
